FAERS Safety Report 7563458-5 (Version None)
Quarter: 2011Q2

REPORT INFORMATION
  Report Type: 
  Country: None (occurrence: None)
  Receive Date: 20110622
  Receipt Date: 20110609
  Transmission Date: 20111010
  Serious: Yes (Other)
  Sender: FDA-Public Use
  Company Number: US-ELI_LILLY_AND_COMPANY-US201106003856

PATIENT
  Sex: Male
  Weight: 132 kg

DRUGS (10)
  1. IBUPROFEN [Concomitant]
     Indication: PAIN
     Dosage: UNK, QD
  2. DIOVAN [Concomitant]
  3. TRAVATAN [Concomitant]
  4. ZYPREXA [Suspect]
     Indication: SCHIZOPHRENIA
     Dosage: 15 MG, QD
     Dates: start: 19960101
  5. CITALOPRAM HYDROBROMIDE [Concomitant]
     Indication: HALLUCINATION
     Dosage: 20 MG, UNK
  6. HALDOL [Concomitant]
     Dosage: UNK, MONTHLY (1/M)
  7. CLONAZEPAM [Concomitant]
     Indication: HALLUCINATION
  8. COSOPT [Concomitant]
     Indication: GLAUCOMA
  9. BETAMETHASONE [Concomitant]
     Indication: PENIS DISORDER
  10. DIPHENHYDRAMINE HCL [Concomitant]

REACTIONS (21)
  - EXCORIATION [None]
  - GAIT DISTURBANCE [None]
  - INSOMNIA [None]
  - VISION BLURRED [None]
  - MEMORY IMPAIRMENT [None]
  - AFFECT LABILITY [None]
  - MEDICATION ERROR [None]
  - CHONDROPATHY [None]
  - FALL [None]
  - BLOOD PRESSURE INCREASED [None]
  - PANIC ATTACK [None]
  - CONFUSIONAL STATE [None]
  - READING DISORDER [None]
  - PENIS DISORDER [None]
  - HYPERSENSITIVITY [None]
  - ADVERSE EVENT [None]
  - THINKING ABNORMAL [None]
  - PARANOIA [None]
  - HALLUCINATION [None]
  - WEIGHT INCREASED [None]
  - INFLUENZA LIKE ILLNESS [None]
